FAERS Safety Report 13884121 (Version 1)
Quarter: 2017Q3

REPORT INFORMATION
  Report Type: Spontaneous
  Country: FR (occurrence: FR)
  Receive Date: 20170821
  Receipt Date: 20170821
  Transmission Date: 20171127
  Serious: Yes (Other)
  Sender: FDA-Public Use
  Company Number: FR-BRISTOL-MYERS SQUIBB COMPANY-BMS-2017-071732

PATIENT
  Age: 84 Year
  Sex: Female

DRUGS (1)
  1. COUMADINE [Suspect]
     Active Substance: WARFARIN SODIUM
     Indication: ATRIAL FIBRILLATION
     Dosage: 1 DF, BID
     Route: 048

REACTIONS (7)
  - Cholestasis [Recovering/Resolving]
  - Overdose [Recovering/Resolving]
  - Lipase increased [Recovering/Resolving]
  - Diarrhoea [Recovering/Resolving]
  - Cell death [Recovering/Resolving]
  - Rectal haemorrhage [Recovering/Resolving]
  - Acute kidney injury [Recovering/Resolving]

NARRATIVE: CASE EVENT DATE: 20170529
